FAERS Safety Report 5698978-1 (Version None)
Quarter: 2008Q2

REPORT INFORMATION
  Report Type: 
  Country: None (occurrence: None)
  Receive Date: 20080408
  Receipt Date: 20060906
  Transmission Date: 20081010
  Serious: No
  Sender: FDA-Public Use
  Company Number: US-BAYER-US-2006-026390

PATIENT

DRUGS (1)
  1. ULTRAVIST 300 [Suspect]

REACTIONS (3)
  - DYSPNOEA [None]
  - SNEEZING [None]
  - URTICARIA [None]
